FAERS Safety Report 11012352 (Version 1)
Quarter: 2015Q2

REPORT INFORMATION
  Report Type: Spontaneous
  Country: US (occurrence: None)
  Receive Date: 20150410
  Receipt Date: 20150410
  Transmission Date: 20150821
  Serious: Yes (Life-Threatening, Hospitalization)
  Sender: FDA-Public Use
  Company Number: None

PATIENT
  Age: 32 Year
  Sex: Male
  Weight: 68.3 kg

DRUGS (5)
  1. CELLCEPT [Concomitant]
     Active Substance: MYCOPHENOLATE MOFETIL\MYCOPHENOLATE MOFETIL HYDROCHLORIDE
  2. PROGRAF [Concomitant]
     Active Substance: TACROLIMUS\TACROLIMUS ANHYDROUS
  3. PREDNISONE. [Concomitant]
     Active Substance: PREDNISONE
  4. BELATACEPT [Suspect]
     Active Substance: BELATACEPT
     Indication: TOXICITY TO VARIOUS AGENTS
     Dosage: 750MG IV X 1?
     Route: 042
     Dates: start: 20150214
  5. THYMOGLOBULIN INDUCTION [Concomitant]

REACTIONS (2)
  - Diffuse large B-cell lymphoma [None]
  - Post transplant lymphoproliferative disorder [None]

NARRATIVE: CASE EVENT DATE: 20150402
